FAERS Safety Report 14326423 (Version 2)
Quarter: 2018Q2

REPORT INFORMATION
  Report Type: Report from Study
  Country: GB (occurrence: GB)
  Receive Date: 20171227
  Receipt Date: 20180412
  Transmission Date: 20180711
  Serious: Yes (Other)
  Sender: FDA-Public Use
  Company Number: GB-ROCHE-1938922

PATIENT
  Sex: Male

DRUGS (6)
  1. ALENDRONIC ACID [Concomitant]
     Active Substance: ALENDRONIC ACID
     Route: 065
  2. SILDENAFIL. [Concomitant]
     Active Substance: SILDENAFIL
     Route: 065
  3. ESBRIET [Suspect]
     Active Substance: PIRFENIDONE
     Indication: IDIOPATHIC PULMONARY FIBROSIS
     Route: 048
     Dates: start: 20170413
  4. PREDNISOLONE. [Concomitant]
     Active Substance: PREDNISOLONE
     Route: 065
  5. SILDENAFIL. [Concomitant]
     Active Substance: SILDENAFIL
     Route: 065
  6. OXYGEN. [Concomitant]
     Active Substance: OXYGEN
     Dosage: 3L/MIN LTOT, 6L/MIN
     Route: 065

REACTIONS (24)
  - Hypersomnia [Unknown]
  - Paraesthesia [Unknown]
  - Oral pain [Recovered/Resolved]
  - Decreased appetite [Unknown]
  - Generalised erythema [Unknown]
  - Nasal oedema [Unknown]
  - Dyspepsia [Unknown]
  - Lower respiratory tract infection [Recovering/Resolving]
  - Flushing [Unknown]
  - Muscle fatigue [Unknown]
  - Cardiac failure [Unknown]
  - Fatigue [Unknown]
  - Dyspnoea exertional [Unknown]
  - Nasal discomfort [Unknown]
  - Nasal disorder [Unknown]
  - Swelling face [Unknown]
  - Hot flush [Unknown]
  - Pruritus generalised [Unknown]
  - Depressed mood [Unknown]
  - Cough [Unknown]
  - Productive cough [Unknown]
  - Eructation [Unknown]
  - Alanine aminotransferase increased [Unknown]
  - Blood potassium increased [Recovered/Resolved]
